FAERS Safety Report 5150006-2 (Version None)
Quarter: 2006Q4

REPORT INFORMATION
  Report Type: 
  Country: None (occurrence: None)
  Receive Date: 20060918
  Receipt Date: 20060525
  Transmission Date: 20070319
  Serious: Yes (Other)
  Sender: FDA-Public Use
  Company Number: US-JNJFOC-20060506082

PATIENT
  Age: 38 Year
  Sex: Female
  Weight: 90.7194 kg

DRUGS (4)
  1. TOPAMAX [Suspect]
     Indication: CONVULSION
     Dosage: 200 MG, 1 IN 1 DAY, ORAL
     Route: 048
     Dates: start: 20050801, end: 20051201
  2. LEXAPRO () SSRI [Concomitant]
  3. TYLENOL (UNSPECIFIED) ACETMINOPHEN [Concomitant]
  4. VALIUM [Concomitant]

REACTIONS (6)
  - DRUG WITHDRAWAL CONVULSIONS [None]
  - FEELING ABNORMAL [None]
  - MUSCLE TWITCHING [None]
  - OVARIAN CYST [None]
  - PAIN [None]
  - PARAESTHESIA [None]
